FAERS Safety Report 13817085 (Version 1)
Quarter: 2017Q3

REPORT INFORMATION
  Report Type: Spontaneous
  Country: GB (occurrence: GB)
  Receive Date: 20170731
  Receipt Date: 20170731
  Transmission Date: 20171127
  Serious: Yes (Hospitalization)
  Sender: FDA-Public Use
  Company Number: GB-TEVA-789526ACC

PATIENT
  Age: 83 Year
  Sex: Female

DRUGS (11)
  1. MORPHINE SULPHATE [Suspect]
     Active Substance: MORPHINE SULFATE
     Indication: PAIN
     Dosage: FOUR TIMES A DAY.
     Dates: end: 20160512
  2. TIOTROPIUM [Concomitant]
     Active Substance: TIOTROPIUM
  3. LISINOPRIL. [Concomitant]
     Active Substance: LISINOPRIL
  4. MIRTAZAPINE. [Concomitant]
     Active Substance: MIRTAZAPINE
  5. LANSOPRAZOLE. [Concomitant]
     Active Substance: LANSOPRAZOLE
  6. SERETIDE [Concomitant]
     Active Substance: FLUTICASONE PROPIONATE\SALMETEROL XINAFOATE
  7. ALENDRONIC ACID [Concomitant]
     Active Substance: ALENDRONIC ACID
  8. SIMVASTATIN. [Concomitant]
     Active Substance: SIMVASTATIN
  9. ASPIRIN. [Concomitant]
     Active Substance: ASPIRIN
  10. LEVOTHYROXINE. [Concomitant]
     Active Substance: LEVOTHYROXINE
  11. DIAZEPAM. [Suspect]
     Active Substance: DIAZEPAM
     Indication: ANXIETY
     Dosage: 6 MILLIGRAM DAILY;
     Route: 048
     Dates: end: 20160522

REACTIONS (2)
  - Fall [Recovered/Resolved]
  - Confusional state [Recovered/Resolved with Sequelae]

NARRATIVE: CASE EVENT DATE: 20160511
